FAERS Safety Report 16011257 (Version 1)
Quarter: 2019Q1

REPORT INFORMATION
  Report Type: Spontaneous
  Country: GB (occurrence: GB)
  Receive Date: 20190227
  Receipt Date: 20190227
  Transmission Date: 20190418
  Serious: Yes (Disabling, Other)
  Sender: FDA-Public Use
  Company Number: GB-SA-2019SA053769

PATIENT
  Age: 49 Year
  Sex: Male
  Weight: 67 kg

DRUGS (5)
  1. THIAMINE. [Concomitant]
     Active Substance: THIAMINE
  2. DUPIXENT [Suspect]
     Active Substance: DUPILUMAB
     Indication: DERMATITIS ATOPIC
     Dosage: 300 MG, QOW
     Route: 058
     Dates: start: 20181101, end: 20190117
  3. SALBUTAMOL SULFATE [Concomitant]
     Active Substance: ALBUTEROL SULFATE
  4. OMEGA-3 FISH OIL [Concomitant]
     Active Substance: FISH OIL\OMEGA-3 FATTY ACIDS
  5. DUORESP SPIROMAX [Concomitant]
     Active Substance: BUDESONIDE\FORMOTEROL

REACTIONS (16)
  - Eye discharge [Unknown]
  - Posterior capsule opacification [Not Recovered/Not Resolved]
  - Rash [Unknown]
  - Eyelid margin crusting [Unknown]
  - Dry eye [Not Recovered/Not Resolved]
  - Dry skin [Unknown]
  - Ocular discomfort [Unknown]
  - Eye pruritus [Unknown]
  - Oral herpes [Unknown]
  - Blepharitis [Not Recovered/Not Resolved]
  - Photophobia [Unknown]
  - Alopecia [Unknown]
  - Visual impairment [Unknown]
  - Cataract [Not Recovered/Not Resolved]
  - Erythema [Unknown]
  - Eczema [Unknown]

NARRATIVE: CASE EVENT DATE: 20181101
